FAERS Safety Report 13410511 (Version 2)
Quarter: 2017Q4

REPORT INFORMATION
  Report Type: Spontaneous
  Country: US (occurrence: US)
  Receive Date: 20170406
  Receipt Date: 20171123
  Transmission Date: 20180320
  Serious: No
  Sender: FDA-Public Use
  Company Number: US-JNJFOC-20170227281

PATIENT
  Sex: Male

DRUGS (2)
  1. RISPERDAL [Suspect]
     Active Substance: RISPERIDONE
     Indication: BIPOLAR DISORDER
     Dosage: 0.25 MG, 1 QAM, 1 QHS,AND 2 QPM, 0.25 MG, 0.5 MG AND INCREASED TO 1 MG QHS AND  UNSPECIFIED DOSE
     Route: 048
     Dates: start: 20020304, end: 20030224
  2. RISPERDAL [Suspect]
     Active Substance: RISPERIDONE
     Indication: DEPRESSION
     Dosage: 0.25 MG, 1 QAM, 1 QHS,AND 2 QPM, 0.25 MG, 0.5 MG AND INCREASED TO 1 MG QHS AND  UNSPECIFIED DOSE
     Route: 048
     Dates: start: 20020304, end: 20030224

REACTIONS (3)
  - Emotional disorder [Unknown]
  - Gynaecomastia [Unknown]
  - Intentional overdose [Unknown]
